FAERS Safety Report 19748716 (Version 1)
Quarter: 2021Q3

REPORT INFORMATION
  Report Type: Spontaneous
  Country: US (occurrence: US)
  Receive Date: 20210825
  Receipt Date: 20210825
  Transmission Date: 20211014
  Serious: Yes (Other)
  Sender: FDA-Public Use
  Company Number: None

PATIENT
  Age: 53 Year
  Sex: Male
  Weight: 94.5 kg

DRUGS (1)
  1. BUPRENORPHINE TRANSDERMAL SYSTEM [Suspect]
     Active Substance: BUPRENORPHINE
     Indication: PAIN
     Dates: start: 20200801, end: 20210818

REACTIONS (5)
  - Blister [None]
  - Skin burning sensation [None]
  - Hypersensitivity [None]
  - Reaction to excipient [None]
  - Skin abrasion [None]

NARRATIVE: CASE EVENT DATE: 20210818
